FAERS Safety Report 9943073 (Version 1)
Quarter: 2014Q1

REPORT INFORMATION
  Report Type: Spontaneous
  Country: ES (occurrence: ES)
  Receive Date: 20140303
  Receipt Date: 20140303
  Transmission Date: 20141002
  Serious: Yes (Other)
  Sender: FDA-Public Use
  Company Number: ES-EISAI INC-E2090-03152-SPO-ES

PATIENT
  Age: 53 Year
  Sex: Female

DRUGS (2)
  1. ZONEGRAN [Suspect]
     Indication: MIGRAINE
     Route: 048
     Dates: start: 20131028, end: 20140107
  2. LYXUMIA [Suspect]
     Indication: DIABETES MELLITUS
     Route: 058
     Dates: start: 20131111, end: 20140107

REACTIONS (1)
  - Neutropenia [Recovered/Resolved]
